FAERS Safety Report 23252808 (Version 1)
Quarter: 2023Q4

REPORT INFORMATION
  Report Type: Spontaneous
  Country: US (occurrence: US)
  Receive Date: 20231201
  Receipt Date: 20231201
  Transmission Date: 20240110
  Serious: No
  Sender: FDA-Public Use
  Company Number: US-JUBILANT CADISTA PHARMACEUTICALS INC.-2023JUB00113

PATIENT
  Age: 83 Year
  Sex: Female

DRUGS (3)
  1. METHYLPREDNISOLONE [Suspect]
     Active Substance: METHYLPREDNISOLONE
     Indication: Respiration abnormal
     Dosage: 24 MG, 1X/DAY IN THE EVENING AFTER DINNER
     Dates: start: 20230301, end: 20230301
  2. METHYLPREDNISOLONE [Suspect]
     Active Substance: METHYLPREDNISOLONE
     Dosage: AS DIRECTED BEFORE BREAKFAST AND AFTER LUNCH
     Dates: start: 20230302
  3. PREDNISONE [Suspect]
     Active Substance: PREDNISONE
     Indication: Polymyalgia rheumatica
     Dosage: UNK

REACTIONS (7)
  - Rash [Unknown]
  - Respiratory tract congestion [Recovered/Resolved]
  - Dyspnoea [Not Recovered/Not Resolved]
  - Emotional disorder [Unknown]
  - Blood glucose increased [Unknown]
  - Hypertension [Unknown]
  - Unevaluable event [Unknown]

NARRATIVE: CASE EVENT DATE: 20230302
